FAERS Safety Report 24883846 (Version 3)
Quarter: 2025Q2

REPORT INFORMATION
  Report Type: Spontaneous
  Country: US (occurrence: US)
  Receive Date: 20250124
  Receipt Date: 20250421
  Transmission Date: 20250717
  Serious: No
  Sender: BIOVITRUM
  Company Number: US-BIOVITRUM-2025-US-000973

PATIENT
  Age: 79 Year
  Sex: Female

DRUGS (1)
  1. VONJO [Suspect]
     Active Substance: PACRITINIB
     Indication: Myelofibrosis
     Route: 048
     Dates: start: 20250102

REACTIONS (12)
  - Fatigue [Unknown]
  - Headache [Unknown]
  - Loss of personal independence in daily activities [Unknown]
  - Product dose omission in error [Unknown]
  - Haemoglobin abnormal [Unknown]
  - Platelet count abnormal [Unknown]
  - Tooth injury [Unknown]
  - Platelet count decreased [Unknown]
  - Product dose omission issue [Unknown]
  - Hypersomnia [Unknown]
  - Ill-defined disorder [Unknown]
  - Haemorrhage [Unknown]
